FAERS Safety Report 7564306-X (Version None)
Quarter: 2011Q2

REPORT INFORMATION
  Report Type: 
  Country: None (occurrence: None)
  Receive Date: 20110622
  Receipt Date: 20110422
  Transmission Date: 20111010
  Serious: No
  Sender: FDA-Public Use
  Company Number: US-ALLERGAN-1105686US

PATIENT
  Age: 77 Year
  Sex: Female

DRUGS (1)
  1. LUMIGAN [Suspect]
     Indication: GLAUCOMA
     Dosage: 1 GTT, SINGLE
     Route: 047
     Dates: start: 20110420, end: 20110420

REACTIONS (5)
  - DRY EYE [None]
  - COUGH [None]
  - VISION BLURRED [None]
  - SINUSITIS [None]
  - URTICARIA [None]
